FAERS Safety Report 9650793 (Version 1)
Quarter: 2013Q4

REPORT INFORMATION
  Report Type: Spontaneous
  Country: US (occurrence: US)
  Receive Date: 20131029
  Receipt Date: 20131029
  Transmission Date: 20140711
  Serious: No
  Sender: FDA-Public Use
  Company Number: US-009507513-1310USA012941

PATIENT
  Sex: 0
  Weight: 57.14 kg

DRUGS (2)
  1. NEXPLANON [Suspect]
     Dosage: 68 MG PER ONE ROD EVERY THREE YEARS
     Route: 059
     Dates: start: 20131025, end: 20131025
  2. NEXPLANON [Suspect]
     Dosage: 68 MG PER ROD EVERY THREE YEARS
     Route: 059
     Dates: start: 201310

REACTIONS (3)
  - Device difficult to use [Unknown]
  - Product quality issue [Unknown]
  - No adverse event [Unknown]
